FAERS Safety Report 8621601-0 (Version None)
Quarter: 2012Q3

REPORT INFORMATION
  Report Type: 
  Country: None (occurrence: None)
  Receive Date: 20120820
  Receipt Date: 20120820
  Transmission Date: 20120928
  Serious: Yes (Other)
  Sender: FDA-Public Use
  Company Number: None

PATIENT
  Sex: Male

DRUGS (1)
  1. ENBREL [Suspect]
     Indication: RHEUMATOID ARTHRITIS
     Dosage: 50MG, QWEEK, SQ
     Dates: start: 20110308, end: 20120814

REACTIONS (2)
  - UNEVALUABLE EVENT [None]
  - NAIL DISORDER [None]
